FAERS Safety Report 25626478 (Version 1)
Quarter: 2025Q3

REPORT INFORMATION
  Report Type: Report from Study
  Country: US (occurrence: US)
  Receive Date: 20250731
  Receipt Date: 20250731
  Transmission Date: 20251020
  Serious: Yes (Other)
  Sender: ABBVIE
  Company Number: US-ABBVIE-6383815

PATIENT
  Sex: Female

DRUGS (1)
  1. HUMIRA [Suspect]
     Active Substance: ADALIMUMAB
     Indication: Ankylosing spondylitis
     Route: 058

REACTIONS (8)
  - Deafness [Unknown]
  - Pain [Unknown]
  - Wrong technique in product usage process [Not Recovered/Not Resolved]
  - Irritability [Unknown]
  - Injection site injury [Unknown]
  - Muscle tightness [Unknown]
  - Device leakage [Unknown]
  - Malaise [Unknown]
